FAERS Safety Report 8174235-9 (Version None)
Quarter: 2012Q1

REPORT INFORMATION
  Report Type: 
  Country: None (occurrence: None)
  Receive Date: 20120224
  Receipt Date: 20120206
  Transmission Date: 20120608
  Serious: Yes (Hospitalization)
  Sender: FDA-Public Use
  Company Number: 2012AP000386

PATIENT
  Age: 76 Year
  Sex: Female

DRUGS (5)
  1. METFORMIN HCL [Suspect]
     Indication: TYPE 2 DIABETES MELLITUS
     Dosage: 850 MG;Q8H
  2. MIRTAZAPINE [Concomitant]
  3. ESCITALOPRAM [Concomitant]
  4. IBUPROFEN [Suspect]
     Indication: BACK PAIN
     Dosage: 600 MG;Q8H
  5. SIMVASTATIN [Concomitant]

REACTIONS (12)
  - DIARRHOEA [None]
  - HAEMOGLOBIN DECREASED [None]
  - BLOOD POTASSIUM INCREASED [None]
  - DRY SKIN [None]
  - HYDRONEPHROSIS [None]
  - BLOOD UREA INCREASED [None]
  - LACTIC ACIDOSIS [None]
  - BLOOD SODIUM DECREASED [None]
  - MUCOSAL DRYNESS [None]
  - HAEMODIALYSIS [None]
  - BLADDER NEOPLASM [None]
  - BLOOD CREATININE INCREASED [None]
